FAERS Safety Report 14225795 (Version 2)
Quarter: 2017Q4

REPORT INFORMATION
  Report Type: Report from Study
  Country: FR (occurrence: FR)
  Receive Date: 20171127
  Receipt Date: 20171213
  Transmission Date: 20180321
  Serious: Yes (Life-Threatening, Hospitalization, Other)
  Sender: FDA-Public Use
  Company Number: FR-SHIRE-FR201729642

PATIENT

DRUGS (17)
  1. ARACYTINE [Suspect]
     Active Substance: CYTARABINE
     Dosage: 6 MG, ON DAY 31
     Route: 037
  2. VINCRISTINE [Suspect]
     Active Substance: VINCRISTINE
     Indication: ACUTE LYMPHOCYTIC LEUKAEMIA
     Dosage: 1.53 MG, 1X/DAY:QD
     Route: 037
     Dates: start: 20170825, end: 20170908
  3. ARACYTINE [Suspect]
     Active Substance: CYTARABINE
     Dosage: 366 MG, UNK
     Route: 042
     Dates: start: 20170924, end: 20170927
  4. DOXORUBICIN [Suspect]
     Active Substance: DOXORUBICIN
     Indication: ACUTE LYMPHOCYTIC LEUKAEMIA
     Dosage: 30.6 MG, 1X/DAY:QD
     Route: 042
     Dates: start: 20170825, end: 20170908
  5. ARACYTINE [Suspect]
     Active Substance: CYTARABINE
     Dosage: 6 MG, 1X/DAY:QD
     Route: 042
     Dates: start: 20170824, end: 20170924
  6. ARACYTINE [Suspect]
     Active Substance: CYTARABINE
     Dosage: 318 MG, UNK
     Dates: start: 20171001, end: 20171004
  7. DOXORUBICIN [Suspect]
     Active Substance: DOXORUBICIN
     Dosage: 32 MG, 1X/DAY:QD
     Route: 042
     Dates: start: 20170915, end: 20170915
  8. DEXAMETHASONE. [Suspect]
     Active Substance: DEXAMETHASONE
     Indication: ACUTE LYMPHOCYTIC LEUKAEMIA
     Dosage: 700 MG, UNK
     Route: 048
     Dates: start: 20170825, end: 20170831
  9. DEXAMETHASONE. [Suspect]
     Active Substance: DEXAMETHASONE
     Dosage: 7000 UNK, UNK
     Route: 048
     Dates: start: 20170908, end: 20170914
  10. PEGASPARGASE [Suspect]
     Active Substance: PEGASPARGASE
     Dosage: 47 MG, UNK
     Route: 042
  11. THIOGUANINE [Suspect]
     Active Substance: THIOGUANINE
     Indication: ACUTE LYMPHOCYTIC LEUKAEMIA
     Dosage: 780 MG, UNK
     Route: 042
     Dates: start: 20170922, end: 20171005
  12. PEGASPARGASE [Suspect]
     Active Substance: PEGASPARGASE
     Indication: ACUTE LYMPHOCYTIC LEUKAEMIA
     Dosage: 1275.0 IU, UNK
     Route: 042
     Dates: start: 20170828, end: 20170828
  13. METHOTREXATE. [Suspect]
     Active Substance: METHOTREXATE
     Indication: ACUTE LYMPHOCYTIC LEUKAEMIA
     Dosage: 15 MG, 1X/DAY:QD
     Route: 037
     Dates: start: 20170828, end: 20170924
  14. ARACYTINE [Suspect]
     Active Substance: CYTARABINE
     Dosage: 46 MG, ON DAY 31
     Route: 042
  15. CYCLOPHOSPHAMIDE. [Suspect]
     Active Substance: CYCLOPHOSPHAMIDE
     Indication: ACUTE LYMPHOCYTIC LEUKAEMIA
     Dosage: 1060 MG, 1X/DAY:QD
     Route: 042
     Dates: start: 20170922, end: 20170922
  16. ARACYTINE [Suspect]
     Active Substance: CYTARABINE
     Indication: ACUTE LYMPHOCYTIC LEUKAEMIA
     Dosage: 30 MG, 1X/DAY:QD
     Route: 042
     Dates: start: 20170828, end: 20170828
  17. VINCRISTINE [Suspect]
     Active Substance: VINCRISTINE
     Dosage: 32 MG, 1X/DAY:QD
     Route: 037
     Dates: start: 20170915, end: 20170915

REACTIONS (3)
  - Quadriplegia [Recovered/Resolved with Sequelae]
  - Toxicity to various agents [Recovered/Resolved with Sequelae]
  - Neurotoxicity [Recovered/Resolved with Sequelae]

NARRATIVE: CASE EVENT DATE: 20171006
